FAERS Safety Report 9145970 (Version 1)
Quarter: 2013Q1

REPORT INFORMATION
  Report Type: Spontaneous
  Country: US (occurrence: None)
  Receive Date: 20130227
  Receipt Date: 20130227
  Transmission Date: 20140127
  Serious: Yes (Other)
  Sender: FDA-Public Use
  Company Number: None

PATIENT
  Age: 75 Year
  Sex: Female
  Weight: 72.58 kg

DRUGS (1)
  1. TAXOL [Suspect]
     Indication: LUNG NEOPLASM MALIGNANT
     Dosage: 200 MG IV Q3WKS
     Route: 042

REACTIONS (5)
  - Cough [None]
  - Chest discomfort [None]
  - Dyspnoea [None]
  - Abdominal pain upper [None]
  - Infusion related reaction [None]
